FAERS Safety Report 8438150-5 (Version None)
Quarter: 2012Q2

REPORT INFORMATION
  Report Type: 
  Country: None (occurrence: None)
  Receive Date: 20120614
  Receipt Date: 20120613
  Transmission Date: 20120825
  Serious: Yes (Hospitalization)
  Sender: FDA-Public Use
  Company Number: GB-ROCHE-1076015

PATIENT
  Age: 51 Year
  Sex: Male
  Weight: 82.7 kg

DRUGS (2)
  1. VEMURAFENIB [Suspect]
     Indication: MALIGNANT MELANOMA
     Dosage: LAST DOSE PRIOR TO SAE ON 04/JUN/2012
     Route: 048
     Dates: start: 20111024, end: 20120604
  2. VEMURAFENIB [Suspect]
     Route: 048
     Dates: start: 20120605

REACTIONS (1)
  - ANAEMIA [None]
